FAERS Safety Report 17037776 (Version 2)
Quarter: 2020Q2

REPORT INFORMATION
  Report Type: Report from Study
  Country: CL (occurrence: CL)
  Receive Date: 20191115
  Receipt Date: 20200522
  Transmission Date: 20200713
  Serious: Yes (Hospitalization, Other)
  Sender: FDA-Public Use
  Company Number: CL-SA-2018SA004364

PATIENT
  Age: 32 Year
  Sex: Female

DRUGS (2)
  1. ALEMTUZUMAB [Suspect]
     Active Substance: ALEMTUZUMAB
     Indication: RELAPSING-REMITTING MULTIPLE SCLEROSIS
     Dosage: 12 MG,QD
     Route: 041
     Dates: start: 20171204, end: 20171206
  2. ACYCLOVIR [ACICLOVIR] [Concomitant]
     Active Substance: ACYCLOVIR
     Indication: PROPHYLAXIS
     Dosage: UNK UNK, QD
     Route: 048
     Dates: start: 20171204

REACTIONS (5)
  - Multiple sclerosis [Not Recovered/Not Resolved]
  - Haemoglobin decreased [Not Recovered/Not Resolved]
  - Limb discomfort [Recovered/Resolved]
  - Asthenia [Recovered/Resolved]
  - Haematocrit decreased [Not Recovered/Not Resolved]

NARRATIVE: CASE EVENT DATE: 20171220
